FAERS Safety Report 21413631 (Version 5)
Quarter: 2024Q2

REPORT INFORMATION
  Report Type: Report from Study
  Country: US (occurrence: US)
  Receive Date: 20221006
  Receipt Date: 20240515
  Transmission Date: 20240716
  Serious: Yes (Other)
  Sender: FDA-Public Use
  Company Number: US-DECIPHERA PHARMACEUTICALS LLC-2022US000823

PATIENT
  Age: 64 Year
  Sex: Female

DRUGS (6)
  1. QINLOCK [Suspect]
     Active Substance: RIPRETINIB
     Indication: Gastric cancer
     Dosage: 100 MILLIGRAM, QD
     Route: 048
     Dates: start: 202008
  2. QINLOCK [Suspect]
     Active Substance: RIPRETINIB
     Dosage: 100 MILLIGRAM, QD
     Route: 048
  3. QINLOCK [Suspect]
     Active Substance: RIPRETINIB
     Dosage: 100 MILLIGRAM, QD
     Route: 048
     Dates: start: 20210221
  4. QINLOCK [Suspect]
     Active Substance: RIPRETINIB
     Dosage: 100 MILLIGRAM, QD
     Route: 048
  5. AMLODIPINE [Suspect]
     Active Substance: AMLODIPINE BESYLATE
     Indication: Hypertension
     Dosage: 1.25 MILLIGRAM
  6. ZOMETA [Concomitant]
     Active Substance: ZOLEDRONIC ACID
     Indication: Product used for unknown indication
     Dosage: UNK
     Dates: start: 20220920

REACTIONS (17)
  - Dry age-related macular degeneration [Unknown]
  - Neovascular age-related macular degeneration [Recovering/Resolving]
  - Visual impairment [Unknown]
  - Restless legs syndrome [Unknown]
  - Solar lentigo [Unknown]
  - Thermal burn [Unknown]
  - Skin fragility [Unknown]
  - Skin lesion [Not Recovered/Not Resolved]
  - Hair texture abnormal [Unknown]
  - Heat illness [Unknown]
  - Limb injury [Unknown]
  - Hyperkeratosis [Unknown]
  - Nausea [Recovering/Resolving]
  - Hypertension [Unknown]
  - Fatigue [Unknown]
  - Underdose [Unknown]
  - Product use in unapproved indication [Unknown]

NARRATIVE: CASE EVENT DATE: 20200801
